FAERS Safety Report 6173168-7 (Version None)
Quarter: 2009Q2

REPORT INFORMATION
  Report Type: 
  Country: None (occurrence: None)
  Receive Date: 20090430
  Receipt Date: 20090422
  Transmission Date: 20091009
  Serious: Yes (Other)
  Sender: FDA-Public Use
  Company Number: JP-PFIZER INC-2009203525

PATIENT

DRUGS (4)
  1. NORVASC [Suspect]
     Indication: HYPERTENSION
     Dosage: 7.5 MG, 1X/DAY
     Route: 048
     Dates: start: 19980101
  2. CARDENALIN [Suspect]
     Indication: HYPERTENSION
     Dosage: 1 MG, 1X/DAY
     Route: 048
     Dates: start: 19980101
  3. SIMVASTATIN [Concomitant]
  4. ASPIRIN DIALUMINATE [Concomitant]

REACTIONS (1)
  - PULMONARY OEDEMA [None]
